FAERS Safety Report 17811788 (Version 5)
Quarter: 2021Q2

REPORT INFORMATION
  Report Type: Spontaneous
  Country: US (occurrence: US)
  Receive Date: 20200521
  Receipt Date: 20210410
  Transmission Date: 20210716
  Serious: No
  Sender: FDA-Public Use
  Company Number: US-SA-2020SA130741

PATIENT
  Age: 69 Year
  Sex: Male

DRUGS (17)
  1. DUPIXENT [Suspect]
     Active Substance: DUPILUMAB
     Dosage: 300 MG, Q3W
     Route: 058
  2. METOPROLOL SUCCINATE. [Concomitant]
     Active Substance: METOPROLOL SUCCINATE
     Dosage: UNK
  3. XARELTO [Concomitant]
     Active Substance: RIVAROXABAN
     Dosage: UNK
     Route: 065
  4. DUPIXENT [Suspect]
     Active Substance: DUPILUMAB
     Indication: DERMATITIS ALLERGIC
     Dosage: 300 MG, QOW
     Route: 058
     Dates: start: 20191219
  5. LATANOPROST. [Concomitant]
     Active Substance: LATANOPROST
  6. FLUCONAZOLE. [Concomitant]
     Active Substance: FLUCONAZOLE
  7. HYDROXYZINE HCL [Concomitant]
     Active Substance: HYDROXYZINE HYDROCHLORIDE
  8. DUPIXENT [Suspect]
     Active Substance: DUPILUMAB
     Indication: DERMATITIS ATOPIC
     Dosage: 300 MG, QOW
     Route: 058
     Dates: start: 20190312, end: 2019
  9. PREDNISONE. [Concomitant]
     Active Substance: PREDNISONE
  10. AMOXICILLIN AND POTASSIUM CLAVULANATE [Concomitant]
  11. FLECAINIDE [Concomitant]
     Active Substance: FLECAINIDE
  12. DICYCLOMINE [Concomitant]
     Active Substance: DICYCLOMINE HYDROCHLORIDE
  13. DESONIDE. [Concomitant]
     Active Substance: DESONIDE
  14. FUROSEMIDE. [Concomitant]
     Active Substance: FUROSEMIDE
     Dosage: UNK
     Route: 065
  15. BRIMONIDINE [Concomitant]
     Active Substance: BRIMONIDINE TARTRATE
  16. BUDESONIDE. [Concomitant]
     Active Substance: BUDESONIDE
     Dosage: UNK
     Route: 065
  17. FLECAINIDE [FLECAINIDE ACETATE] [Concomitant]
     Active Substance: FLECAINIDE ACETATE

REACTIONS (7)
  - Eye discharge [Not Recovered/Not Resolved]
  - Visual impairment [Unknown]
  - Paraesthesia [Not Recovered/Not Resolved]
  - Eye discharge [Unknown]
  - Hypoaesthesia [Not Recovered/Not Resolved]
  - Conjunctivitis [Not Recovered/Not Resolved]
  - Conjunctivitis [Unknown]

NARRATIVE: CASE EVENT DATE: 20200513
